FAERS Safety Report 6168033-5 (Version None)
Quarter: 2009Q2

REPORT INFORMATION
  Report Type: 
  Country: None (occurrence: None)
  Receive Date: 20090423
  Receipt Date: 20081222
  Transmission Date: 20091009
  Serious: Yes (Other)
  Sender: FDA-Public Use
  Company Number: WAES 0812USA05227

PATIENT
  Sex: Female

DRUGS (6)
  1. PRINZIDE [Suspect]
     Dosage: PO
     Route: 048
  2. NEXIUM [Concomitant]
  3. PRAVACHOL [Concomitant]
  4. SYNTHROID [Concomitant]
  5. TOPROL-XL [Concomitant]
  6. ASPIRIN [Concomitant]

REACTIONS (1)
  - CUTANEOUS LUPUS ERYTHEMATOSUS [None]
